FAERS Safety Report 7728907-8 (Version None)
Quarter: 2011Q3

REPORT INFORMATION
  Report Type: 
  Country: None (occurrence: None)
  Receive Date: 20110906
  Receipt Date: 20110830
  Transmission Date: 20111222
  Serious: Yes (Other)
  Sender: FDA-Public Use
  Company Number: AR-AMGEN-ARGSP2011039459

PATIENT
  Age: 53 Year
  Sex: Male

DRUGS (3)
  1. ENBREL [Suspect]
     Indication: PSORIATIC ARTHROPATHY
     Dosage: 25 MG, WEEKLY
     Route: 058
     Dates: start: 20050804, end: 20110701
  2. ENALAPRIL MALEATE [Concomitant]
     Dosage: UNK
     Route: 048
  3. ENBREL [Suspect]
     Dosage: UNK
     Dates: start: 20110801

REACTIONS (1)
  - HEPATITIS [None]
